FAERS Safety Report 9720919 (Version 1)
Quarter: 2013Q4

REPORT INFORMATION
  Report Type: Spontaneous
  Country: RO (occurrence: RO)
  Receive Date: 20131129
  Receipt Date: 20131129
  Transmission Date: 20140711
  Serious: Yes (Other)
  Sender: FDA-Public Use
  Company Number: PHHY2013RO136475

PATIENT
  Age: 25 Year
  Sex: Female

DRUGS (3)
  1. HYDROXYCHLOROQUINE [Suspect]
     Indication: SYSTEMIC LUPUS ERYTHEMATOSUS
     Route: 065
     Dates: end: 2004
  2. PREDNISONE [Concomitant]
     Indication: SYSTEMIC LUPUS ERYTHEMATOSUS
     Dosage: 10 MG, QD
     Route: 048
     Dates: start: 1994, end: 2007
  3. ISONIAZID W/PYRAZINAMIDE/RIFAMPICIN//ETHAMBUTOL [Concomitant]
     Dates: start: 200705, end: 200804

REACTIONS (2)
  - Gastrointestinal disorder [Unknown]
  - Drug intolerance [Unknown]
